FAERS Safety Report 15656236 (Version 2)
Quarter: 2018Q4

REPORT INFORMATION
  Report Type: Report from Study
  Country: BR (occurrence: BR)
  Receive Date: 20181126
  Receipt Date: 20181210
  Transmission Date: 20190205
  Serious: Yes (Death, Hospitalization)
  Sender: FDA-Public Use
  Company Number: BR-LPDUSPRD-20182197

PATIENT
  Age: 62 Year
  Sex: Female
  Weight: 40 kg

DRUGS (13)
  1. BISOPROLOL [Concomitant]
     Active Substance: BISOPROLOL
     Dosage: 10 MG, (5 MG, 2 IN 1 D)
     Route: 048
     Dates: start: 201712
  2. ATROVASTATIN [Concomitant]
     Active Substance: ATORVASTATIN CALCIUM
     Dosage: 80 MG, 1 IN 1 D
     Route: 048
     Dates: start: 201501
  3. SALBUTAMOL [Concomitant]
     Active Substance: ALBUTEROL
     Dosage: 100 MCG, INTERMITTENT
     Route: 065
     Dates: start: 201801
  4. FERINJECT [Suspect]
     Active Substance: FERRIC CARBOXYMALTOSE
     Dosage: 10 ML
     Route: 040
     Dates: start: 20180616, end: 20180616
  5. ASA [Concomitant]
     Active Substance: ASPIRIN
     Dosage: 100 MG, 1 IN 1 D
     Route: 048
     Dates: start: 201102
  6. FUROSEMIDE. [Concomitant]
     Active Substance: FUROSEMIDE
     Dosage: 40 MG, 1 IN 1 D
     Route: 048
     Dates: start: 201801
  7. HYDRALAZINE [Concomitant]
     Active Substance: HYDRALAZINE HYDROCHLORIDE
     Dosage: 50 MG, (25 MG, 2 IN 1D)
     Route: 048
     Dates: start: 201801
  8. OMEPRAZOLE. [Concomitant]
     Active Substance: OMEPRAZOLE
     Dosage: 20 MG (1 IN1 D)
     Route: 048
     Dates: start: 201712
  9. ISOSORBIDE MONONITRATE. [Concomitant]
     Active Substance: ISOSORBIDE MONONITRATE
     Dosage: 80 MG (40 MG, 2 IN 1D)
     Route: 048
     Dates: start: 201102
  10. AMLODIPINE [Concomitant]
     Active Substance: AMLODIPINE BESYLATE
     Dosage: 5 MG, 1 IN 1 D
     Route: 048
     Dates: start: 201801
  11. CLOPIDOGREL [Concomitant]
     Active Substance: CLOPIDOGREL BISULFATE
     Dosage: 75 MG (1 IN 1 D)
     Route: 048
     Dates: start: 201502
  12. TIOTROPIUM [Concomitant]
     Active Substance: TIOTROPIUM
     Dosage: 5 MCG , 1 IN 1 D
     Route: 065
     Dates: start: 201801
  13. BUDESONIDE W/ FORMOTEROL [Concomitant]
     Dosage: 12/400 MICROGRAM (2 IN 1 D)
     Route: 065
     Dates: start: 201801

REACTIONS (6)
  - Septic shock [Recovered/Resolved]
  - Multiple organ dysfunction syndrome [Fatal]
  - Pneumothorax [Recovered/Resolved]
  - Cardiac failure [Fatal]
  - Cardio-respiratory arrest [Recovered/Resolved]
  - Chronic kidney disease [Not Recovered/Not Resolved]

NARRATIVE: CASE EVENT DATE: 2018
